FAERS Safety Report 24338107 (Version 2)
Quarter: 2024Q4

REPORT INFORMATION
  Report Type: Spontaneous
  Country: TR (occurrence: TR)
  Receive Date: 20240919
  Receipt Date: 20241001
  Transmission Date: 20250114
  Serious: Yes (Hospitalization, Other)
  Sender: RANBAXY
  Company Number: TR-SUN PHARMACEUTICAL INDUSTRIES LTD-2024R1-468734

PATIENT
  Age: 29 Year
  Sex: Male

DRUGS (1)
  1. EMPAGLIFLOZIN [Suspect]
     Active Substance: EMPAGLIFLOZIN
     Indication: Neutropenia
     Dosage: UNK
     Route: 065

REACTIONS (1)
  - Urinary tract infection [Unknown]
